FAERS Safety Report 6984516 (Version 3)
Quarter: 2014Q1

REPORT INFORMATION
  Report Type: Spontaneous
  Country: US (occurrence: US)
  Receive Date: 20090501
  Receipt Date: 20140326
  Transmission Date: 20141002
  Serious: Yes (Other)
  Sender: FDA-Public Use
  Company Number: US-ALEXION-A200800218

PATIENT
  Age: 61 Year
  Sex: Female

DRUGS (13)
  1. SOLIRIS [Suspect]
     Indication: PAROXYSMAL NOCTURNAL HAEMOGLOBINURIA
     Dosage: 600 MG, SINGLE
     Route: 042
     Dates: start: 20080819, end: 20080819
  2. SOLIRIS [Suspect]
     Dosage: 600 MG, SINGLE
     Route: 042
     Dates: start: 20080826, end: 20080826
  3. SOLIRIS [Suspect]
     Dosage: 600 MG, SINGLE
     Route: 042
     Dates: start: 20080903, end: 20080903
  4. SOLIRIS [Suspect]
     Dosage: 600 MG, SINGLE
     Route: 042
     Dates: start: 20080909, end: 20080909
  5. SOLIRIS [Suspect]
     Dosage: 900 MG, SINGLE
     Route: 042
     Dates: start: 20080916, end: 20080916
  6. BENADRYL /00000402/ [Concomitant]
     Indication: PREMEDICATION
     Dosage: 50 MG, Q2 WEEKS
     Route: 042
  7. ASPIRIN [Concomitant]
     Dosage: 81 UNK, UNK
     Route: 048
  8. LISINOPRIL [Concomitant]
     Dosage: 10 MG, UNK
     Route: 048
  9. FOLIC ACID [Concomitant]
     Dosage: 1 MG, UNK
     Route: 048
  10. PAXIL [Concomitant]
     Dosage: 10 MG, UNK
     Route: 048
  11. DECADRON                           /00016001/ [Concomitant]
     Dosage: 10 MG, UNK
     Route: 042
  12. COMPAZINE                          /00013302/ [Concomitant]
     Indication: NAUSEA
     Dosage: 5 MG, UNK
     Route: 042
  13. DEMEROL [Concomitant]
     Indication: CHILLS
     Dosage: 12.5 MG, UNK
     Route: 042

REACTIONS (6)
  - Hypersensitivity [Recovered/Resolved]
  - Erythema [Unknown]
  - Dyspnoea [Unknown]
  - Nausea [Unknown]
  - Chills [Unknown]
  - Blood pressure increased [Unknown]
